FAERS Safety Report 5914684-X (Version None)
Quarter: 2008Q4

REPORT INFORMATION
  Report Type: 
  Country: None (occurrence: None)
  Receive Date: 20081010
  Receipt Date: 20080923
  Transmission Date: 20090506
  Serious: Yes (Other)
  Sender: FDA-Public Use
  Company Number: US-BAYER-200823297NA

PATIENT
  Age: 77 Year
  Sex: Male

DRUGS (62)
  1. MAGNEVIST [Suspect]
     Indication: NUCLEAR MAGNETIC RESONANCE IMAGING
  2. OMNISCAN [Suspect]
     Indication: ANGIOGRAM
  3. OPTIMARK [Suspect]
     Indication: ANGIOGRAM
  4. PROHANCE [Suspect]
     Indication: ANGIOGRAM
  5. MULTIHANCE [Suspect]
     Indication: ANGIOGRAM
  6. EPOGEN [Concomitant]
     Route: 058
  7. NEPHROCAPS [Concomitant]
     Route: 048
     Dates: start: 19980901
  8. LASIX [Concomitant]
     Route: 048
  9. HYTRIN [Concomitant]
     Route: 048
  10. HYTRIN [Concomitant]
  11. PEPCID [Concomitant]
     Route: 048
  12. PLAVIX [Concomitant]
     Route: 048
  13. LISINOPRIL [Concomitant]
     Route: 048
  14. ANCEF [Concomitant]
     Route: 042
  15. NITRO-BID [Concomitant]
     Route: 048
  16. METOPROLOL TARTRATE [Concomitant]
     Route: 048
  17. METOPROLOL TARTRATE [Concomitant]
     Route: 048
  18. LOVASTATIN [Concomitant]
     Route: 048
  19. LOVASTATIN [Concomitant]
     Route: 048
  20. NITROGYCERIN SUBLINGUAL [Concomitant]
     Route: 060
  21. PROCRIT [Concomitant]
  22. DILTIAZEM HCL [Concomitant]
  23. TERAZOSIN HCL [Concomitant]
  24. PRINIVIL [Concomitant]
  25. PRINIVIL [Concomitant]
  26. INSULIN [Concomitant]
  27. KAYEXALATE [Concomitant]
  28. PHOSLO [Concomitant]
  29. ZESTRIL [Concomitant]
     Route: 048
  30. ADALAT [Concomitant]
  31. DILACOR CD [Concomitant]
     Route: 048
     Dates: start: 19980901
  32. FERROUS SULFATE [Concomitant]
  33. ALBUTEROL [Concomitant]
     Route: 055
     Dates: start: 20060327
  34. ATROVENT [Concomitant]
     Route: 055
  35. CARDIZEM [Concomitant]
     Route: 048
  36. CARDIZEM [Concomitant]
  37. LOPRESSOR [Concomitant]
  38. MEVACOR [Concomitant]
  39. PLAVIX [Concomitant]
     Route: 048
  40. SILVER NITRATE [Concomitant]
     Route: 061
     Dates: start: 20000327
  41. ACETIC ACID [Concomitant]
     Route: 061
     Dates: start: 20000405
  42. NIFEDIPINE [Concomitant]
     Route: 048
  43. VITAMIN B COMPLEX WITH C [Concomitant]
     Route: 048
  44. FOLIC ACID [Concomitant]
     Route: 048
  45. KEFLEX [Concomitant]
     Route: 048
     Dates: start: 20010725, end: 20010803
  46. TYLENOL (CAPLET) [Concomitant]
  47. BIAXIN [Concomitant]
  48. ROCEPHIN [Concomitant]
  49. CIPROFLOXACIN [Concomitant]
     Route: 048
  50. SALICYLATE [Concomitant]
  51. METOPROLOL TARTRATE [Concomitant]
  52. COUMADIN [Concomitant]
  53. AVELOX [Concomitant]
     Route: 048
     Dates: start: 20060327
  54. VANCOMYCIN HYDROCHLORIDE [Concomitant]
     Dates: start: 20060501, end: 20060701
  55. VITAMIN K TAB [Concomitant]
  56. PERCOCET [Concomitant]
  57. RENAGEL [Concomitant]
     Route: 048
  58. VICODIN [Concomitant]
  59. ENDOCET [Concomitant]
  60. LIDEX [Concomitant]
     Indication: RASH PRURITIC
     Route: 061
  61. PREDNISONE TAB [Concomitant]
  62. OMNIPAQUE 350 [Concomitant]
     Dosage: AS USED: 100 ML
     Route: 042
     Dates: start: 20060215, end: 20060215

REACTIONS (26)
  - DEPRESSION [None]
  - DUPUYTREN'S CONTRACTURE [None]
  - ERYTHEMA [None]
  - FIBROSIS [None]
  - ISCHAEMIC ULCER [None]
  - JOINT CONTRACTURE [None]
  - JOINT RANGE OF MOTION DECREASED [None]
  - JOINT SWELLING [None]
  - MENTAL DISORDER [None]
  - MOBILITY DECREASED [None]
  - MUSCLE CONTRACTURE [None]
  - MUSCULAR WEAKNESS [None]
  - MUSCULOSKELETAL STIFFNESS [None]
  - NEPHROGENIC SYSTEMIC FIBROSIS [None]
  - OEDEMA PERIPHERAL [None]
  - ONYCHOMADESIS [None]
  - PAIN [None]
  - RASH [None]
  - SENSORY LOSS [None]
  - SKIN DISORDER [None]
  - SKIN EXFOLIATION [None]
  - SKIN HYPERTROPHY [None]
  - SKIN INDURATION [None]
  - SKIN NECROSIS [None]
  - SKIN TIGHTNESS [None]
  - SKIN WRINKLING [None]
